FAERS Safety Report 9539659 (Version 3)
Quarter: 2013Q4

REPORT INFORMATION
  Report Type: Spontaneous
  Country: GB (occurrence: GB)
  Receive Date: 20130920
  Receipt Date: 20131001
  Transmission Date: 20140711
  Serious: Yes (Other)
  Sender: FDA-Public Use
  Company Number: PHFR2013GB004558

PATIENT
  Age: 27 Year
  Sex: Male

DRUGS (4)
  1. CLOZARIL [Suspect]
     Indication: SCHIZOPHRENIA
     Dosage: UNK
     Route: 048
     Dates: start: 20080407
  2. CLOZARIL [Suspect]
     Dosage: 550 MG, DAILY
     Route: 048
     Dates: start: 201109
  3. ARIPIPRAZOLE [Concomitant]
     Indication: PSYCHOTIC DISORDER
     Dosage: 10 MG, DAILY
     Route: 048
     Dates: start: 201109
  4. LANSOPRAZOL [Concomitant]
     Dosage: 10 MG, DAILY
     Route: 048
     Dates: start: 201109

REACTIONS (2)
  - Haemoglobin decreased [Recovered/Resolved]
  - Platelet count decreased [Unknown]
